FAERS Safety Report 17153270 (Version 1)
Quarter: 2019Q4

REPORT INFORMATION
  Report Type: Spontaneous
  Country: FR (occurrence: FR)
  Receive Date: 20191213
  Receipt Date: 20191213
  Transmission Date: 20200122
  Serious: Yes (Other)
  Sender: FDA-Public Use
  Company Number: FR-MYLANLABS-2019M1122795

PATIENT
  Age: 38 Year
  Sex: Female

DRUGS (2)
  1. SALAZOPYRINE [Concomitant]
     Active Substance: SULFASALAZINE
     Dosage: UNK, BID
  2. CELECOXIB MYLAN PHARMA 100 MG, G?LULE [Suspect]
     Active Substance: CELECOXIB
     Indication: PRODUCT USED FOR UNKNOWN INDICATION
     Dosage: UNK
     Dates: start: 20191005, end: 20191206

REACTIONS (3)
  - Adnexa uteri pain [Not Recovered/Not Resolved]
  - Uterine haemorrhage [Recovering/Resolving]
  - Breast pain [Not Recovered/Not Resolved]

NARRATIVE: CASE EVENT DATE: 2019
